FAERS Safety Report 4303867-0 (Version None)
Quarter: 2004Q1

REPORT INFORMATION
  Report Type: 
  Country: None (occurrence: None)
  Receive Date: 20040225
  Receipt Date: 20030128
  Transmission Date: 20041129
  Serious: Yes (Hospitalization)
  Sender: FDA-Public Use
  Company Number: FR-GLAXOSMITHKLINE-B0291030A

PATIENT
  Age: 46 Year
  Sex: Male

DRUGS (8)
  1. COMBIVIR [Suspect]
     Indication: HIV INFECTION
     Route: 065
     Dates: start: 20000101, end: 20021127
  2. VIRAMUNE [Suspect]
     Indication: HIV INFECTION
     Route: 065
     Dates: start: 20000101
  3. VIREAD [Concomitant]
     Indication: HIV INFECTION
     Dosage: 1UNIT PER DAY
  4. EPIVIR [Concomitant]
     Indication: HIV INFECTION
     Dosage: 300MG PER DAY
  5. CORTANCYL [Concomitant]
     Dosage: 5MG PER DAY
  6. BRONCHODUAL [Concomitant]
     Route: 065
     Dates: start: 20021104, end: 20021112
  7. ORELOX [Concomitant]
     Route: 065
     Dates: start: 20021104, end: 20021112
  8. NASACORT [Concomitant]
     Route: 065
     Dates: start: 20021104, end: 20021112

REACTIONS (10)
  - BIOPSY BONE MARROW ABNORMAL [None]
  - COOMBS POSITIVE HAEMOLYTIC ANAEMIA [None]
  - ERYTHROPENIA [None]
  - HAPTOGLOBIN INCREASED [None]
  - HYPERHIDROSIS [None]
  - LOSS OF CONSCIOUSNESS [None]
  - LYMPHADENOPATHY [None]
  - MACROCYTOSIS [None]
  - MALAISE [None]
  - PALLOR [None]
